FAERS Safety Report 20566076 (Version 2)
Quarter: 2022Q2

REPORT INFORMATION
  Report Type: Spontaneous
  Country: US (occurrence: US)
  Receive Date: 20220308
  Receipt Date: 20220628
  Transmission Date: 20220721
  Serious: No
  Sender: FDA-Public Use
  Company Number: US-GW PHARMA-202202USGW01066

PATIENT
  Sex: Female
  Weight: 73.016 kg

DRUGS (7)
  1. EPIDIOLEX [Suspect]
     Active Substance: CANNABIDIOL
     Indication: Lennox-Gastaut syndrome
     Dosage: 8.88 MG/KG/DAY, 320 MILLIGRAM, BID
     Route: 048
     Dates: start: 202001
  2. EPIDIOLEX [Suspect]
     Active Substance: CANNABIDIOL
     Dosage: 8.88 MG/KG/DAY, 320 MILLIGRAM, BID
     Route: 048
     Dates: start: 202001
  3. EPIDIOLEX [Suspect]
     Active Substance: CANNABIDIOL
     Dosage: 3.2 MILLILITER
     Route: 048
  4. RISPERIDONE [Concomitant]
     Active Substance: RISPERIDONE
  5. CLOBAZAM [Concomitant]
     Active Substance: CLOBAZAM
  6. LAMOTRIGINE [Concomitant]
     Active Substance: LAMOTRIGINE
  7. BANZEL [Concomitant]
     Active Substance: RUFINAMIDE

REACTIONS (1)
  - Head injury [Unknown]

NARRATIVE: CASE EVENT DATE: 20220101
